FAERS Safety Report 4350710-X (Version None)
Quarter: 2004Q2

REPORT INFORMATION
  Report Type: 
  Country: None (occurrence: None)
  Receive Date: 20040430
  Receipt Date: 20020809
  Transmission Date: 20050107
  Serious: Yes (Hospitalization)
  Sender: FDA-Public Use
  Company Number: US-MERCK-0209USA01976

PATIENT
  Age: 52 Year
  Sex: Female
  Weight: 45 kg

DRUGS (3)
  1. TYLENOL (CAPLET) [Concomitant]
     Route: 065
  2. ASPIRIN [Concomitant]
     Route: 065
  3. VIOXX [Suspect]
     Indication: TENOSYNOVITIS STENOSANS
     Route: 048
     Dates: start: 20010423, end: 20010806

REACTIONS (18)
  - ANXIETY [None]
  - ARTHRALGIA [None]
  - BACK PAIN [None]
  - DECREASED APPETITE [None]
  - DIABETES MELLITUS [None]
  - DRUG HYPERSENSITIVITY [None]
  - DYSPNOEA [None]
  - GLAUCOMA [None]
  - HEADACHE [None]
  - HEART RATE INCREASED [None]
  - HYPERTENSION [None]
  - INJURY [None]
  - INSOMNIA [None]
  - NON-CARDIAC CHEST PAIN [None]
  - PALPITATIONS [None]
  - STRESS SYMPTOMS [None]
  - THYROID DISORDER [None]
  - TOOTH EXTRACTION [None]
